FAERS Safety Report 19394154 (Version 2)
Quarter: 2021Q4

REPORT INFORMATION
  Report Type: Spontaneous
  Country: PK (occurrence: PK)
  Receive Date: 20210609
  Receipt Date: 20211202
  Transmission Date: 20220303
  Serious: Yes (Disabling, Other)
  Sender: FDA-Public Use
  Company Number: PK-AMGEN-PAKSP2021084822

PATIENT

DRUGS (1)
  1. XGEVA [Suspect]
     Active Substance: DENOSUMAB
     Indication: Bone giant cell tumour
     Dosage: 120 MILLIGRAM, QWK
     Route: 065

REACTIONS (9)
  - Postoperative wound complication [Unknown]
  - Bone giant cell tumour [Unknown]
  - Arthralgia [Unknown]
  - Mobility decreased [Unknown]
  - Muscle strength abnormal [Unknown]
  - General physical condition abnormal [Unknown]
  - Emotional disorder [Unknown]
  - Procedural pain [Unknown]
  - Post procedural infection [Unknown]
